FAERS Safety Report 4869191-2 (Version None)
Quarter: 2005Q4

REPORT INFORMATION
  Report Type: 
  Country: None (occurrence: None)
  Receive Date: 20051228
  Receipt Date: 20051228
  Transmission Date: 20060501
  Serious: Yes (Death)
  Sender: FDA-Public Use
  Company Number: None

PATIENT
  Sex: Male
  Weight: 57.3 kg

DRUGS (6)
  1. PEG-ASPARAGINASE , ONCASPAR (ENZON) 750 UNIT/ML [Suspect]
     Indication: ACUTE LYMPHOCYTIC LEUKAEMIA
     Dosage: 10/20/05 3875 UNITS, 10/14/05 3800 UNITS, 10/27/05 3925 UNITS
     Dates: start: 20051014
  2. PEG-ASPARAGINASE , ONCASPAR (ENZON) 750 UNIT/ML [Suspect]
     Indication: LEUKAEMIA RECURRENT
     Dosage: 10/20/05 3875 UNITS, 10/14/05 3800 UNITS, 10/27/05 3925 UNITS
     Dates: start: 20051014
  3. PEG-ASPARAGINASE , ONCASPAR (ENZON) 750 UNIT/ML [Suspect]
     Indication: ACUTE LYMPHOCYTIC LEUKAEMIA
     Dosage: 10/20/05 3875 UNITS, 10/14/05 3800 UNITS, 10/27/05 3925 UNITS
     Dates: start: 20051020
  4. PEG-ASPARAGINASE , ONCASPAR (ENZON) 750 UNIT/ML [Suspect]
     Indication: LEUKAEMIA RECURRENT
     Dosage: 10/20/05 3875 UNITS, 10/14/05 3800 UNITS, 10/27/05 3925 UNITS
     Dates: start: 20051020
  5. PEG-ASPARAGINASE , ONCASPAR (ENZON) 750 UNIT/ML [Suspect]
     Indication: ACUTE LYMPHOCYTIC LEUKAEMIA
     Dosage: 10/20/05 3875 UNITS, 10/14/05 3800 UNITS, 10/27/05 3925 UNITS
     Dates: start: 20051027
  6. PEG-ASPARAGINASE , ONCASPAR (ENZON) 750 UNIT/ML [Suspect]
     Indication: LEUKAEMIA RECURRENT
     Dosage: 10/20/05 3875 UNITS, 10/14/05 3800 UNITS, 10/27/05 3925 UNITS
     Dates: start: 20051027

REACTIONS (4)
  - CEREBROVASCULAR ACCIDENT [None]
  - SUPERIOR SAGITTAL SINUS THROMBOSIS [None]
  - THROMBOSIS [None]
  - TRANSVERSE SINUS THROMBOSIS [None]
